FAERS Safety Report 7747810-0 (Version None)
Quarter: 2011Q3

REPORT INFORMATION
  Report Type: 
  Country: None (occurrence: None)
  Receive Date: 20110913
  Receipt Date: 20110908
  Transmission Date: 20111222
  Serious: Yes (Other)
  Sender: FDA-Public Use
  Company Number: US-PURDUE-USA-2011-0069041

PATIENT
  Sex: Female

DRUGS (1)
  1. OXYCONTIN [Suspect]
     Indication: PAIN
     Dosage: 80 MG, TID
     Dates: start: 20110101

REACTIONS (11)
  - ABASIA [None]
  - GASTROINTESTINAL MOTILITY DISORDER [None]
  - HYPERHIDROSIS [None]
  - FAECALOMA [None]
  - DYSPNOEA [None]
  - NAUSEA [None]
  - ASTHENIA [None]
  - CARDIAC FLUTTER [None]
  - ABDOMINAL DISTENSION [None]
  - BLOOD PRESSURE DECREASED [None]
  - DRUG EFFECT DECREASED [None]
